FAERS Safety Report 9855697 (Version 2)
Quarter: 2014Q1

REPORT INFORMATION
  Report Type: Spontaneous
  Country: GB (occurrence: GB)
  Receive Date: 20140130
  Receipt Date: 20140130
  Transmission Date: 20141002
  Serious: Yes (Other)
  Sender: FDA-Public Use
  Company Number: GB-PFIZER INC-2013339887

PATIENT
  Sex: Female

DRUGS (1)
  1. SALAZOPYRIN [Suspect]
     Dosage: UNK
     Route: 050

REACTIONS (2)
  - Exposure via partner [Unknown]
  - Abortion spontaneous [Unknown]
